FAERS Safety Report 10142932 (Version 2)
Quarter: 2014Q2

REPORT INFORMATION
  Report Type: Report from Study
  Country: US (occurrence: US)
  Receive Date: 20140430
  Receipt Date: 20140430
  Transmission Date: 20141212
  Serious: Yes (Other)
  Sender: FDA-Public Use
  Company Number: US-ROCHE-1299376

PATIENT
  Age: 11 Year
  Sex: Female
  Weight: 28.7 kg

DRUGS (2)
  1. NUTROPIN AQ [Suspect]
     Indication: RENAL FAILURE CHRONIC
     Route: 058
  2. NUTROPIN AQ [Suspect]
     Route: 058

REACTIONS (6)
  - Hypertension [Unknown]
  - Anaemia [Unknown]
  - Incorrect dose administered [Unknown]
  - Mood altered [Unknown]
  - Headache [Unknown]
  - Puberty [Unknown]
